FAERS Safety Report 5966233-8 (Version None)
Quarter: 2008Q4

REPORT INFORMATION
  Report Type: 
  Country: None (occurrence: None)
  Receive Date: 20081125
  Receipt Date: 20081119
  Transmission Date: 20090506
  Serious: Yes (Death, Life-Threatening, Hospitalization)
  Sender: FDA-Public Use
  Company Number: JP-AVENTIS-200810189JP

PATIENT
  Age: 76 Year
  Sex: Female
  Weight: 51 kg

DRUGS (9)
  1. TAXOTERE [Suspect]
     Route: 041
     Dates: start: 20071218, end: 20071218
  2. ENDOXAN [Concomitant]
     Route: 041
     Dates: start: 20071016, end: 20071218
  3. LOXONIN                            /00890701/ [Concomitant]
  4. MUCOSTA [Concomitant]
  5. RINDERON                           /00008501/ [Concomitant]
  6. CIPROXAN [Concomitant]
  7. DEXART [Concomitant]
     Indication: PREMEDICATION
     Route: 041
     Dates: start: 20071016, end: 20071218
  8. KYTRIL                             /01178101/ [Concomitant]
     Indication: PREMEDICATION
     Route: 041
     Dates: start: 20071016, end: 20071218
  9. ZANTAC [Concomitant]
     Indication: PREMEDICATION
     Route: 041
     Dates: start: 20071016, end: 20071218

REACTIONS (1)
  - INTERSTITIAL LUNG DISEASE [None]
